FAERS Safety Report 13440634 (Version 1)
Quarter: 2017Q2

REPORT INFORMATION
  Report Type: Spontaneous
  Country: US (occurrence: US)
  Receive Date: 20170413
  Receipt Date: 20170413
  Transmission Date: 20170830
  Serious: No
  Sender: FDA-Public Use
  Company Number: US-ASTRAZENECA-2017SE35706

PATIENT
  Age: 76 Year
  Sex: Male
  Weight: 76.7 kg

DRUGS (2)
  1. PROAIR HFA [Concomitant]
     Active Substance: ALBUTEROL SULFATE
     Indication: WHEEZING
     Dosage: AS REQUIRED
     Route: 055
     Dates: start: 201510
  2. SYMBICORT [Suspect]
     Active Substance: BUDESONIDE\FORMOTEROL FUMARATE DIHYDRATE
     Indication: BRONCHITIS CHRONIC
     Dosage: 2 INHALATIONS TWICE A DAY
     Route: 055
     Dates: start: 201510

REACTIONS (3)
  - Dysphonia [Not Recovered/Not Resolved]
  - Wheezing [Unknown]
  - Productive cough [Unknown]

NARRATIVE: CASE EVENT DATE: 2015
